FAERS Safety Report 10900883 (Version 2)
Quarter: 2015Q2

REPORT INFORMATION
  Report Type: Spontaneous
  Country: US (occurrence: US)
  Receive Date: 20150310
  Receipt Date: 20150601
  Transmission Date: 20150821
  Serious: No
  Sender: FDA-Public Use
  Company Number: US-PFIZER INC-2015086423

PATIENT
  Age: 80 Year
  Sex: Female
  Weight: 79 kg

DRUGS (4)
  1. DIOVAN [Concomitant]
     Active Substance: VALSARTAN
     Indication: HYPERTENSION
     Dosage: 80 MG, 3X/DAY
     Route: 048
  2. XANAX [Suspect]
     Active Substance: ALPRAZOLAM
     Indication: ANXIETY
     Dosage: 0.5 MG, 4X/DAY
     Route: 048
     Dates: start: 20150303
  3. DIOVAN [Concomitant]
     Active Substance: VALSARTAN
     Dosage: 1 DF, 4X/DAY
     Route: 048
  4. SINEQUAN [Concomitant]
     Active Substance: DOXEPIN HYDROCHLORIDE
     Indication: ANXIETY
     Dosage: 1 UNK, 4X/DAY
     Route: 048

REACTIONS (9)
  - Dizziness [Not Recovered/Not Resolved]
  - Malaise [Not Recovered/Not Resolved]
  - Feeling abnormal [Not Recovered/Not Resolved]
  - Tinnitus [Not Recovered/Not Resolved]
  - Irritability [Not Recovered/Not Resolved]
  - Hypokinesia [Unknown]
  - Vertigo [Not Recovered/Not Resolved]
  - Disturbance in attention [Unknown]
  - Gait disturbance [Unknown]

NARRATIVE: CASE EVENT DATE: 2015
